FAERS Safety Report 10101195 (Version 2)
Quarter: 2014Q3

REPORT INFORMATION
  Report Type: Spontaneous
  Country: JP (occurrence: None)
  Receive Date: 20140422
  Receipt Date: 20140711
  Transmission Date: 20150326
  Serious: Yes (Death, Other)
  Sender: FDA-Public Use
  Company Number: ABR_01592_2014

PATIENT
  Age: 0 Day
  Sex: Male
  Weight: .5 kg

DRUGS (3)
  1. ERYTHROCIN [Suspect]
     Active Substance: ERYTHROMYCIN LACTOBIONATE
     Indication: MATERNAL EXPOSURE DURING PREGNANCY
     Route: 064
     Dates: start: 20061202, end: 20061202
  2. AMPICILLIN [Concomitant]
     Active Substance: AMPICILLIN
  3. RITODRINE HYDROCHLORIDE [Concomitant]
     Active Substance: RITODRINE HYDROCHLORIDE

REACTIONS (5)
  - Pulmonary hypoplasia [None]
  - Dyspnoea [None]
  - Premature baby [None]
  - Apgar score low [None]
  - Maternal drugs affecting foetus [None]

NARRATIVE: CASE EVENT DATE: 20061202
